FAERS Safety Report 9370853 (Version 3)
Quarter: 2013Q3

REPORT INFORMATION
  Report Type: Report from Study
  Country: US (occurrence: US)
  Receive Date: 20130626
  Receipt Date: 20130826
  Transmission Date: 20140515
  Serious: Yes (Other)
  Sender: FDA-Public Use
  Company Number: US-SANOFI-AVENTIS-2013SA063912

PATIENT
  Age: 68 Year
  Sex: Female
  Weight: 72 kg

DRUGS (10)
  1. AUBAGIO [Suspect]
     Indication: MULTIPLE SCLEROSIS
     Dosage: PRODUCT STOP DATE: 2 MONTHS AGO.
     Route: 048
     Dates: start: 20130319
  2. ASPIRIN [Concomitant]
     Indication: ANTIPLATELET THERAPY
     Dates: start: 2008
  3. NITROFURANTOIN [Concomitant]
     Indication: CYSTITIS
     Dates: start: 200703
  4. VESICARE [Concomitant]
     Indication: BLADDER DISORDER
     Dates: start: 201003
  5. FOITX [Concomitant]
     Indication: VITAMIN SUPPLEMENTATION
     Dates: start: 2005
  6. MULTIVITAMINS [Concomitant]
  7. CALCIUM [Concomitant]
  8. VITAMIN D3 [Concomitant]
  9. VITAMIN C [Concomitant]
  10. FISH OIL [Concomitant]

REACTIONS (4)
  - Multiple sclerosis [Not Recovered/Not Resolved]
  - Gait disturbance [Not Recovered/Not Resolved]
  - Fatigue [Not Recovered/Not Resolved]
  - Memory impairment [Unknown]
